FAERS Safety Report 9478542 (Version 1)
Quarter: 2013Q3

REPORT INFORMATION
  Report Type: Spontaneous
  Country: FR (occurrence: FR)
  Receive Date: 20130827
  Receipt Date: 20130827
  Transmission Date: 20140515
  Serious: Yes (Hospitalization)
  Sender: FDA-Public Use
  Company Number: FR-ABBOTT-13P-056-1137009-00

PATIENT
  Age: 46 Year
  Sex: Female

DRUGS (2)
  1. HUMIRA [Suspect]
     Indication: ANKYLOSING SPONDYLITIS
  2. HUMIRA [Suspect]
     Dates: start: 201305

REACTIONS (8)
  - Hot flush [Unknown]
  - Rhinorrhoea [Unknown]
  - Dizziness [Unknown]
  - Sinusitis [Unknown]
  - Fall [Unknown]
  - Fractured coccyx [Unknown]
  - Ligament sprain [Unknown]
  - Ligament sprain [Unknown]
